FAERS Safety Report 21772086 (Version 2)
Quarter: 2022Q4

REPORT INFORMATION
  Report Type: Report from Study
  Country: US (occurrence: US)
  Receive Date: 20221223
  Receipt Date: 20221223
  Transmission Date: 20230113
  Serious: No
  Sender: FDA-Public Use
  Company Number: US-ABBVIE-4213000

PATIENT
  Sex: Female

DRUGS (1)
  1. HUMIRA [Suspect]
     Active Substance: ADALIMUMAB
     Indication: Hidradenitis
     Dosage: STRENGTH: 40 MG
     Route: 058

REACTIONS (4)
  - Skin fissures [Recovering/Resolving]
  - Skin papilloma [Recovering/Resolving]
  - Dermatitis [Recovering/Resolving]
  - Limb discomfort [Unknown]
